FAERS Safety Report 20211939 (Version 3)
Quarter: 2021Q4

REPORT INFORMATION
  Report Type: Report from Study
  Country: CN (occurrence: None)
  Receive Date: 20211221
  Receipt Date: 20211223
  Transmission Date: 20220303
  Serious: Yes (Hospitalization)
  Sender: FDA-Public Use
  Company Number: CN-Eisai Medical Research-EC-2021-105222

PATIENT
  Age: 66 Year
  Sex: Female
  Weight: 49 kg

DRUGS (10)
  1. LENVATINIB [Suspect]
     Active Substance: LENVATINIB
     Indication: Hepatocellular carcinoma
     Dosage: STARTING AT 12 MG, FLUCTUATED DOSAGE
     Route: 048
     Dates: start: 20190924, end: 20211118
  2. LENVATINIB [Suspect]
     Active Substance: LENVATINIB
     Route: 048
     Dates: start: 20211119, end: 20211119
  3. PEMBROLIZUMAB [Suspect]
     Active Substance: PEMBROLIZUMAB
     Indication: Hepatocellular carcinoma
     Route: 041
     Dates: start: 20190924, end: 20210928
  4. PEMBROLIZUMAB [Suspect]
     Active Substance: PEMBROLIZUMAB
     Route: 041
     Dates: start: 20211019, end: 20211019
  5. HYDROCHLOROTHIAZIDE [Concomitant]
     Active Substance: HYDROCHLOROTHIAZIDE
     Dates: start: 201401
  6. SILYBIN MEGLUMINE [Concomitant]
     Dates: start: 20180708
  7. LEUCOGEN [Concomitant]
     Active Substance: LEUCOGEN
     Dates: start: 20191015
  8. LEVOTHYROXINE SODIUM [Concomitant]
     Active Substance: LEVOTHYROXINE SODIUM
     Dates: start: 20200521
  9. FELODIPINE [Concomitant]
     Active Substance: FELODIPINE
     Dates: start: 20200711
  10. TENOFOVIR [Concomitant]
     Active Substance: TENOFOVIR
     Dates: start: 20210312

REACTIONS (2)
  - Nausea [Recovered/Resolved]
  - Vomiting [Recovered/Resolved]

NARRATIVE: CASE EVENT DATE: 20211211
